FAERS Safety Report 15965939 (Version 2)
Quarter: 2019Q3

REPORT INFORMATION
  Report Type: Spontaneous
  Country: US (occurrence: US)
  Receive Date: 20190215
  Receipt Date: 20190926
  Transmission Date: 20191004
  Serious: No
  Sender: FDA-Public Use
  Company Number: US-PFIZER INC-2019060148

PATIENT
  Age: 36 Year
  Sex: Female

DRUGS (2)
  1. XELJANZ [Suspect]
     Active Substance: TOFACITINIB CITRATE
     Indication: ALOPECIA
     Dosage: 25 MG, DAILY (ONE 5 MG TABLET ONCE IN THE MORNING AND TWO 10 MG TABLETS AT NIGHT)
  2. XELJANZ [Suspect]
     Active Substance: TOFACITINIB CITRATE
     Dosage: 25 MG, DAILY (ONE 5 MG TABLET ONCE IN THE MORNING AND TWO 10 MG TABLETS AT NIGHT)

REACTIONS (4)
  - Product use in unapproved indication [Unknown]
  - Prescribed overdose [Unknown]
  - Oral pain [Unknown]
  - Off label use [Unknown]
